FAERS Safety Report 7095833-X (Version None)
Quarter: 2010Q4

REPORT INFORMATION
  Report Type: 
  Country: None (occurrence: None)
  Receive Date: 20101111
  Receipt Date: 20101101
  Transmission Date: 20110411
  Serious: Yes (Death)
  Sender: FDA-Public Use
  Company Number: US-BAXTER-2010BH024565

PATIENT
  Age: 69 Year
  Sex: Male

DRUGS (1)
  1. DIANEAL [Suspect]
     Indication: PERITONEAL DIALYSIS
     Route: 033
     Dates: end: 20100926

REACTIONS (4)
  - ADRENAL CARCINOMA [None]
  - CARDIAC ARREST [None]
  - HEPATIC NEOPLASM MALIGNANT [None]
  - RENAL CANCER [None]
